FAERS Safety Report 18012817 (Version 1)
Quarter: 2020Q3

REPORT INFORMATION
  Report Type: Spontaneous
  Country: US (occurrence: US)
  Receive Date: 20200710
  Receipt Date: 20200710
  Transmission Date: 20201103
  Serious: Yes (Other)
  Sender: FDA-Public Use
  Company Number: None

PATIENT
  Age: 64 Year
  Sex: Female
  Weight: 58.06 kg

DRUGS (1)
  1. UDENYCA [Suspect]
     Active Substance: PEGFILGRASTIM-CBQV
     Indication: NEUTROPENIA
     Route: 058
     Dates: start: 20200518, end: 20200518

REACTIONS (2)
  - Muscle spasms [None]
  - Pain [None]

NARRATIVE: CASE EVENT DATE: 20200515
